FAERS Safety Report 7276766-2 (Version None)
Quarter: 2011Q1

REPORT INFORMATION
  Report Type: 
  Country: None (occurrence: None)
  Receive Date: 20110206
  Receipt Date: 20110128
  Transmission Date: 20110831
  Serious: Yes (Hospitalization, Other)
  Sender: FDA-Public Use
  Company Number: JP-BRISTOL-MYERS SQUIBB COMPANY-15396716

PATIENT
  Age: 73 Year
  Sex: Female

DRUGS (14)
  1. ORENCIA [Suspect]
     Indication: RHEUMATOID ARTHRITIS
     Route: 042
     Dates: start: 20100921
  2. BISOPROLOL [Concomitant]
     Dates: start: 20100128
  3. METHOTREXATE [Suspect]
  4. VOLTAREN [Suspect]
  5. CARDILOL [Concomitant]
     Dates: start: 20100127
  6. VITAMIN B-12 [Concomitant]
     Dates: start: 20100321
  7. SELBEX [Concomitant]
  8. PROGRAF [Suspect]
  9. ROSUVASTATIN [Concomitant]
  10. RAMIPRIL [Concomitant]
  11. FOLIAMIN [Concomitant]
  12. PREDNISOLONE [Suspect]
     Indication: RHEUMATOID ARTHRITIS
     Route: 048
  13. METHYCOOL [Concomitant]
  14. CLOPIDOGREL BISULFATE [Concomitant]
     Dates: start: 20091122

REACTIONS (3)
  - ANAEMIA [None]
  - GASTRIC ULCER [None]
  - ALOPECIA [None]
